FAERS Safety Report 9067778 (Version 1)
Quarter: 2013Q1

REPORT INFORMATION
  Report Type: Spontaneous
  Country: FR (occurrence: FR)
  Receive Date: 20130206
  Receipt Date: 20130206
  Transmission Date: 20140127
  Serious: Yes (Hospitalization)
  Sender: FDA-Public Use
  Company Number: FR-ASTRAZENECA-2013SE07446

PATIENT
  Age: 714 Month
  Sex: Male

DRUGS (6)
  1. ZESTRIL [Suspect]
     Indication: HYPERTENSION
     Route: 048
  2. AMAREL [Interacting]
     Indication: TYPE 2 DIABETES MELLITUS
     Route: 048
  3. ACENOCOUMAROL [Interacting]
     Route: 048
     Dates: end: 20130104
  4. GLUCOR [Concomitant]
     Indication: TYPE 2 DIABETES MELLITUS
     Route: 048
  5. LASILIX [Concomitant]
     Route: 048
  6. DETENSIEL [Concomitant]
     Route: 048

REACTIONS (9)
  - Drug interaction [Recovered/Resolved]
  - Epistaxis [Recovered/Resolved]
  - International normalised ratio increased [Recovered/Resolved]
  - Anaemia [Recovered/Resolved]
  - Hypoglycaemia [Recovered/Resolved]
  - Skin ulcer [Unknown]
  - Blood iron decreased [None]
  - Prothrombin time prolonged [None]
  - Gamma-glutamyltransferase increased [None]
